FAERS Safety Report 10313820 (Version 2)
Quarter: 2015Q2

REPORT INFORMATION
  Report Type: Spontaneous
  Country: US (occurrence: US)
  Receive Date: 20140718
  Receipt Date: 20150421
  Transmission Date: 20150821
  Serious: Yes (Hospitalization)
  Sender: FDA-Public Use
  Company Number: US-BAYER-2014-107249

PATIENT
  Age: 35 Year
  Sex: Female
  Weight: 90.7 kg

DRUGS (3)
  1. IBUPROFEN. [Concomitant]
     Active Substance: IBUPROFEN
     Dosage: UNK
     Dates: start: 2005
  2. YASMIN [Suspect]
     Active Substance: DROSPIRENONE\ETHINYL ESTRADIOL
     Indication: CONTRACEPTION
     Dosage: UNK
     Route: 048
     Dates: start: 200801, end: 20081223
  3. ALBUTEROL. [Concomitant]
     Active Substance: ALBUTEROL
     Indication: ASTHMA
     Dosage: UNK
     Dates: start: 2005

REACTIONS (11)
  - Injury [None]
  - Quality of life decreased [None]
  - Emotional distress [None]
  - Erythema [None]
  - Deep vein thrombosis [None]
  - Fear of disease [None]
  - Pain [None]
  - Pain in extremity [None]
  - Peripheral swelling [None]
  - General physical health deterioration [None]
  - Anxiety [None]

NARRATIVE: CASE EVENT DATE: 20081223
